FAERS Safety Report 7504692-X (Version None)
Quarter: 2011Q2

REPORT INFORMATION
  Report Type: 
  Country: None (occurrence: None)
  Receive Date: 20110525
  Receipt Date: 20110519
  Transmission Date: 20111010
  Serious: Yes (Hospitalization, Disabling, Other)
  Sender: FDA-Public Use
  Company Number: US-MERCK-1010USA02209

PATIENT
  Age: 77 Year
  Sex: Female
  Weight: 52 kg

DRUGS (3)
  1. ACTONEL [Suspect]
     Indication: OSTEOPENIA
     Route: 048
     Dates: start: 20000101, end: 20011201
  2. FOSAMAX [Suspect]
     Route: 048
     Dates: start: 20080218, end: 20090427
  3. FOSAMAX [Suspect]
     Indication: OSTEOPENIA
     Route: 048
     Dates: start: 20010301, end: 20080217

REACTIONS (32)
  - HYPERLIPIDAEMIA [None]
  - CHEST DISCOMFORT [None]
  - CAROTID BRUIT [None]
  - ANAEMIA [None]
  - OSTEONECROSIS OF JAW [None]
  - DENTAL CARIES [None]
  - DIVERTICULUM [None]
  - CELLULITIS [None]
  - ABDOMINAL PAIN [None]
  - COLON ADENOMA [None]
  - TOOTH INFECTION [None]
  - ORAL CAVITY FISTULA [None]
  - DENTAL NECROSIS [None]
  - SUBCUTANEOUS ABSCESS [None]
  - SCIATICA [None]
  - PALPITATIONS [None]
  - COUGH [None]
  - CATARACT OPERATION [None]
  - DYSPNOEA [None]
  - TOOTH DISORDER [None]
  - TOOTH ABSCESS [None]
  - BONE DISORDER [None]
  - EXERCISE TOLERANCE DECREASED [None]
  - BONE LOSS [None]
  - CHEST PAIN [None]
  - LYMPHOID TISSUE HYPERPLASIA [None]
  - FISTULA DISCHARGE [None]
  - WEIGHT DECREASED [None]
  - DENTAL FISTULA [None]
  - CEREBROVASCULAR DISORDER [None]
  - HYPERTENSION [None]
  - GASTROOESOPHAGEAL REFLUX DISEASE [None]
